FAERS Safety Report 9451134 (Version 2)
Quarter: 2013Q4

REPORT INFORMATION
  Report Type: Spontaneous
  Country: AU (occurrence: AU)
  Receive Date: 20130809
  Receipt Date: 20131016
  Transmission Date: 20140711
  Serious: Yes (Life-Threatening)
  Sender: FDA-Public Use
  Company Number: AU-ROCHE-1260033

PATIENT
  Age: 61 Year
  Sex: Female

DRUGS (5)
  1. ACTILYSE [Suspect]
     Indication: ISCHAEMIC STROKE
     Route: 065
     Dates: start: 20130727, end: 20130727
  2. THYROXINE [Concomitant]
  3. METFORMIN [Concomitant]
     Route: 065
     Dates: start: 2012
  4. NIFEDIPINE [Concomitant]
     Route: 065
     Dates: start: 2010
  5. LISINOPRIL [Concomitant]
     Route: 065
     Dates: start: 2010

REACTIONS (4)
  - Angioedema [Recovered/Resolved]
  - Swollen tongue [Recovered/Resolved]
  - Lip swelling [Recovered/Resolved]
  - Wheezing [Recovered/Resolved]
